FAERS Safety Report 20056201 (Version 2)
Quarter: 2021Q4

REPORT INFORMATION
  Report Type: Spontaneous
  Country: FR (occurrence: FR)
  Receive Date: 20211111
  Receipt Date: 20211119
  Transmission Date: 20220303
  Serious: Yes (Life-Threatening)
  Sender: FDA-Public Use
  Company Number: FR-CELLTRION INC.-2021FR014904

PATIENT

DRUGS (2)
  1. INFLIXIMAB [Suspect]
     Active Substance: INFLIXIMAB
     Indication: Granulomatosis with polyangiitis
     Dosage: DOSE BETWEEN 3 AND 10 MG/KG, MAINLY WITH INITIAL INFUSIONS AT WEEKS 0, 2, AND 6
  2. INFLIXIMAB [Suspect]
     Active Substance: INFLIXIMAB
     Dosage: BETWEEN 3 AND 10 MG/KG MAINTENANCE REGIMEN EVERY 4 WEEKS

REACTIONS (7)
  - Drug hypersensitivity [Unknown]
  - Infusion related reaction [Unknown]
  - Respiratory tract infection [Unknown]
  - Dyspnoea [Unknown]
  - Depression [Unknown]
  - Off label use [Unknown]
  - Drug ineffective for unapproved indication [Unknown]
